FAERS Safety Report 23079864 (Version 3)
Quarter: 2023Q4

REPORT INFORMATION
  Report Type: Spontaneous
  Country: ID (occurrence: ID)
  Receive Date: 20231018
  Receipt Date: 20231024
  Transmission Date: 20240109
  Serious: Yes (Other)
  Sender: FDA-Public Use
  Company Number: ID-PFIZER INC-PV202300166966

PATIENT
  Age: 36 Year
  Sex: Male

DRUGS (4)
  1. METHYLPREDNISOLONE SODIUM SUCCINATE [Suspect]
     Active Substance: METHYLPREDNISOLONE SODIUM SUCCINATE
     Indication: Drug reaction with eosinophilia and systemic symptoms
     Dosage: 125 MG, DAILY
     Route: 042
  2. MOMETASONE FUROATE [Concomitant]
     Active Substance: MOMETASONE FUROATE
     Indication: Drug reaction with eosinophilia and systemic symptoms
     Dosage: 0.1 %, 2X/DAY
  3. DESOXIMETASONE [Concomitant]
     Active Substance: DESOXIMETASONE
     Indication: Drug reaction with eosinophilia and systemic symptoms
     Dosage: UNK UNK, 2X/DAY
  4. UREA [Concomitant]
     Active Substance: UREA
     Indication: Drug reaction with eosinophilia and systemic symptoms
     Dosage: UNK UNK, 2X/DAY

REACTIONS (3)
  - Melaena [Unknown]
  - Off label use [Unknown]
  - Drug effective for unapproved indication [Unknown]
